FAERS Safety Report 5135723-2 (Version None)
Quarter: 2006Q4

REPORT INFORMATION
  Report Type: 
  Country: None (occurrence: None)
  Receive Date: 20061024
  Receipt Date: 20061024
  Transmission Date: 20070319
  Serious: Yes (Life-Threatening, Other)
  Sender: FDA-Public Use
  Company Number: None

PATIENT
  Age: 43 Year
  Sex: Female
  Weight: 47.6277 kg

DRUGS (2)
  1. INTERFERON [Suspect]
     Indication: HEPATITIS C
     Dosage: PRE-FILLED INJECTION   WEEKLY  IM
     Route: 030
     Dates: start: 20050610, end: 20050914
  2. RIBAVIRIN [Suspect]
     Dosage: 8 TABLETS  DAILY  PO
     Route: 048
     Dates: start: 20050610, end: 20050914

REACTIONS (3)
  - BLOOD COUNT ABNORMAL [None]
  - MIGRAINE WITH AURA [None]
  - VIRAL LOAD INCREASED [None]
